FAERS Safety Report 9756636 (Version 1)
Quarter: 2013Q4

REPORT INFORMATION
  Report Type: Spontaneous
  Country: US (occurrence: US)
  Receive Date: 20131213
  Receipt Date: 20131213
  Transmission Date: 20140711
  Serious: Yes (Hospitalization)
  Sender: FDA-Public Use
  Company Number: US-PFIZER INC-2013355330

PATIENT
  Age: 84 Year
  Sex: Female

DRUGS (1)
  1. TIKOSYN [Suspect]
     Dosage: 500 MG, 2X/DAY

REACTIONS (2)
  - Limb injury [Unknown]
  - Neck injury [Unknown]
